FAERS Safety Report 4412752-5 (Version None)
Quarter: 2004Q2

REPORT INFORMATION
  Report Type: 
  Country: None (occurrence: None)
  Receive Date: 20040630
  Receipt Date: 20040309
  Transmission Date: 20050107
  Serious: No
  Sender: FDA-Public Use
  Company Number: 04P-163-0253152-00

PATIENT
  Age: 75 Year
  Sex: Female
  Weight: 80.7403 kg

DRUGS (13)
  1. HUMIRA [Suspect]
     Indication: RHEUMATOID ARTHRITIS
     Dosage: 40 MG, 1 IN 2 WK, SUBCUTANEOUS
     Route: 058
     Dates: start: 20040201
  2. PREDNISONE [Concomitant]
  3. HYDROCODONE [Concomitant]
  4. ZOLPIDEM TARTRATE [Concomitant]
  5. GLIPIZIDE [Concomitant]
  6. FUROSEMIDE [Concomitant]
  7. POTASSIUM [Concomitant]
  8. PRAVASTATIN SODIUM [Concomitant]
  9. ALPRAZOLAM [Concomitant]
  10. M.V.I. [Concomitant]
  11. IRON [Concomitant]
  12. ATENOLOL [Concomitant]
  13. PROMETHAZINE [Concomitant]

REACTIONS (3)
  - DIARRHOEA [None]
  - HAEMORRHAGE [None]
  - WOUND [None]
